FAERS Safety Report 4673098-3 (Version None)
Quarter: 2005Q2

REPORT INFORMATION
  Report Type: 
  Country: None (occurrence: None)
  Receive Date: 20050524
  Receipt Date: 20050524
  Transmission Date: 20051028
  Serious: No
  Sender: FDA-Public Use
  Company Number: None

PATIENT
  Age: 21 Year
  Sex: Female

DRUGS (2)
  1. BACTRIM DS [Suspect]
     Indication: URINARY TRACT INFECTION
     Dosage: 800/160   TWICE DAILY   ORAL
     Route: 048
     Dates: start: 20050307, end: 20050308
  2. PHENAZOPYRIDINE [Concomitant]

REACTIONS (4)
  - NASOPHARYNGEAL DISORDER [None]
  - NAUSEA [None]
  - URTICARIA [None]
  - VOMITING [None]
